FAERS Safety Report 20007810 (Version 1)
Quarter: 2021Q4

REPORT INFORMATION
  Report Type: Spontaneous
  Country: JP (occurrence: JP)
  Receive Date: 20211028
  Receipt Date: 20211028
  Transmission Date: 20220303
  Serious: Yes (Hospitalization, Other)
  Sender: FDA-Public Use
  Company Number: JP-ONO-2021JP026418

PATIENT
  Age: 74 Year
  Sex: Male
  Weight: 56.1 kg

DRUGS (1)
  1. OPDIVO [Suspect]
     Active Substance: NIVOLUMAB
     Indication: Oesophageal carcinoma
     Dosage: 240 MILLIGRAM
     Route: 041
     Dates: start: 20211004

REACTIONS (4)
  - Dizziness [Unknown]
  - Hyponatraemia [Unknown]
  - Adrenal insufficiency [Not Recovered/Not Resolved]
  - Blood corticotrophin decreased [Unknown]

NARRATIVE: CASE EVENT DATE: 20211021
